FAERS Safety Report 6535066-6 (Version None)
Quarter: 2010Q1

REPORT INFORMATION
  Report Type: 
  Country: None (occurrence: None)
  Receive Date: 20100112
  Receipt Date: 20100106
  Transmission Date: 20100710
  Serious: Yes (Hospitalization)
  Sender: FDA-Public Use
  Company Number: PL-GILEAD-2009-0023207

PATIENT
  Sex: Male
  Weight: 72.867 kg

DRUGS (9)
  1. TRUVADA [Suspect]
     Indication: HIV INFECTION
     Route: 048
     Dates: start: 20090629, end: 20090728
  2. TRUVADA [Suspect]
     Route: 048
     Dates: start: 20090602, end: 20090627
  3. EFAVIRENZ PLACEBO [Concomitant]
     Indication: HIV INFECTION
     Dates: start: 20090602, end: 20090728
  4. QUINAPRIL [Concomitant]
     Dates: start: 20090217
  5. AMLODIPINE [Concomitant]
     Dates: start: 20090217
  6. BISOPROLOL FUMARATE [Concomitant]
     Dates: start: 20090217
  7. ACETYLSALICYLIC ACID [Concomitant]
     Dates: start: 20090217
  8. KETOPROFEN [Concomitant]
     Dates: end: 20090624
  9. METAMIZOLE [Concomitant]
     Dates: start: 20090613, end: 20090615

REACTIONS (2)
  - LEUKOCYTURIA [None]
  - PYELONEPHRITIS [None]
